FAERS Safety Report 23930099 (Version 1)
Quarter: 2024Q2

REPORT INFORMATION
  Report Type: Spontaneous
  Country: CH (occurrence: CH)
  Receive Date: 20240601
  Receipt Date: 20240601
  Transmission Date: 20240716
  Serious: Yes (Other)
  Sender: FDA-Public Use
  Company Number: CH-STRIDES ARCOLAB LIMITED-2024SP006342

PATIENT
  Age: 67 Year
  Sex: Male

DRUGS (3)
  1. AMANTADINE [Suspect]
     Active Substance: AMANTADINE
     Indication: Multiple system atrophy
     Dosage: 100 MILLIGRAM, QD
     Route: 065
  2. AMANTADINE [Suspect]
     Active Substance: AMANTADINE
     Dosage: 100 MILLIGRAM, BID
     Route: 065
  3. BENSERAZIDE HYDROCHLORIDE\LEVODOPA [Concomitant]
     Active Substance: BENSERAZIDE HYDROCHLORIDE\LEVODOPA
     Indication: Multiple system atrophy
     Dosage: UNK, QID
     Route: 065

REACTIONS (2)
  - Opsoclonus [Recovered/Resolved]
  - Off label use [Unknown]
